FAERS Safety Report 9152652 (Version 1)
Quarter: 2013Q1

REPORT INFORMATION
  Report Type: Report from Study
  Country: US (occurrence: US)
  Receive Date: 20130308
  Receipt Date: 20130308
  Transmission Date: 20140127
  Serious: Yes (Hospitalization)
  Sender: FDA-Public Use
  Company Number: US-US-EMD SERONO, INC.-7197563

PATIENT
  Age: 26 None
  Sex: Female
  Weight: 77 kg

DRUGS (4)
  1. REBIF [Suspect]
     Indication: MULTIPLE SCLEROSIS
     Route: 058
     Dates: start: 20130126
  2. REBIF [Suspect]
     Dates: end: 20130210
  3. TEGRETAL [Suspect]
     Indication: TRIGEMINAL NEURALGIA
  4. BUTALBITAL [Concomitant]
     Indication: HEADACHE

REACTIONS (6)
  - Drug eruption [Recovering/Resolving]
  - Lymphadenopathy [Recovering/Resolving]
  - Pyrexia [Recovered/Resolved]
  - White blood cell count decreased [Recovered/Resolved]
  - Liver function test abnormal [Recovered/Resolved]
  - Erythema [Unknown]
